FAERS Safety Report 16027293 (Version 2)
Quarter: 2019Q4

REPORT INFORMATION
  Report Type: Report from Study
  Country: None (occurrence: TN)
  Receive Date: 20190303
  Receipt Date: 20191019
  Transmission Date: 20200122
  Serious: Yes (Hospitalization, Disabling, Other)
  Sender: FDA-Public Use
  Company Number: TN-ABBVIE-19K-160-2684644-00

PATIENT
  Sex: Male

DRUGS (2)
  1. HUMIRA [Suspect]
     Active Substance: ADALIMUMAB
     Indication: CROHN^S DISEASE
     Route: 058
     Dates: start: 20180417, end: 201812
  2. HUMIRA [Suspect]
     Active Substance: ADALIMUMAB
     Indication: SPONDYLITIS
     Route: 058
     Dates: start: 20190914

REACTIONS (9)
  - Back pain [Recovering/Resolving]
  - Tuberculosis [Recovered/Resolved]
  - Musculoskeletal chest pain [Recovering/Resolving]
  - Post procedural complication [Unknown]
  - Weight decreased [Not Recovered/Not Resolved]
  - Gastrointestinal surgery [Unknown]
  - Mobility decreased [Recovered/Resolved]
  - Pelvic pain [Recovering/Resolving]
  - Drug ineffective [Not Recovered/Not Resolved]

NARRATIVE: CASE EVENT DATE: 2018
